FAERS Safety Report 14871530 (Version 2)
Quarter: 2018Q2

REPORT INFORMATION
  Report Type: Report from Study
  Country: US (occurrence: US)
  Receive Date: 20180509
  Receipt Date: 20180518
  Transmission Date: 20180711
  Serious: Yes (Hospitalization)
  Sender: FDA-Public Use
  Company Number: US-BAXTER-2018BAX013479

PATIENT
  Age: 49 Year
  Sex: Female

DRUGS (13)
  1. PEGFILGRASTIM [Suspect]
     Active Substance: PEGFILGRASTIM
     Dosage: REGIMEN-B, CYCLICALLY ON DAY 4) (OR FILGRASTIM 5-10 MCG/KG DAILY) UNTIL RECOVERY OF GRANULOCYTE COUN
     Route: 058
  2. VINCRISTINE SULPHATE [Suspect]
     Active Substance: VINCRISTINE SULFATE
     Indication: PRODUCT USED FOR UNKNOWN INDICATION
     Dosage: REGIMEN-A, CYCLICALLY ON DAY 1 AND DAY 8
     Route: 042
  3. CYTARABINE. [Suspect]
     Active Substance: CYTARABINE
     Indication: PRODUCT USED FOR UNKNOWN INDICATION
     Dosage: REGIMEN-B, OVER 3 HOURS TWICE A DAY, 4 DOSES ON DAYS 2 AND 3
     Route: 042
  4. CYCLOPHOSPHAMIDE FOR INJECTION, USP [Suspect]
     Active Substance: CYCLOPHOSPHAMIDE
     Indication: PRODUCT USED FOR UNKNOWN INDICATION
     Dosage: REGIMEN A, OVER 3 HOURS TWICE A DAY ON DAYS 1-3
     Route: 042
  5. RITUXIMAB. [Suspect]
     Active Substance: RITUXIMAB
     Dosage: REGIMEN-B, CYCLICALLY ON DAY 2 AND DAY 8 (CYCLES 2 AND 4 ONLY)
     Route: 042
  6. INOTUZUMAB OZOGAMICIN [Suspect]
     Active Substance: INOTUZUMAB OZOGAMICIN
     Indication: ACUTE LYMPHOCYTIC LEUKAEMIA
     Dosage: REGIMEN A, OVER 1 HOUR ON DAY 3 (C2D17)
     Route: 042
     Dates: start: 20180125
  7. METHOTREXATE SODIUM. [Suspect]
     Active Substance: METHOTREXATE SODIUM
     Indication: PRODUCT USED FOR UNKNOWN INDICATION
     Dosage: REGIMEN-B, OVER 2 HOURS ON DAY 1
     Route: 042
  8. DEXAMETHASONE PHOSPHATE [Suspect]
     Active Substance: DEXAMETHASONE PHOSPHATE
     Indication: PRODUCT USED FOR UNKNOWN INDICATION
     Dosage: REGIMEN A, FOR 4 DAYS ON DAYS 1-4 AND DAYS 11-14
     Route: 042
  9. METHOTREXATE SODIUM. [Suspect]
     Active Substance: METHOTREXATE SODIUM
     Dosage: REGIMEN-B, CONTINUOUS INFUSION OVER 22 HOURS ON DAY 1
     Route: 042
  10. PEGFILGRASTIM [Suspect]
     Active Substance: PEGFILGRASTIM
     Indication: PRODUCT USED FOR UNKNOWN INDICATION
     Dosage: REGIMEN-A, CYCLICALLY ON DAY 4) (OR FILGRASTIM 5-10 MCG/KG DAILY) UNTIL RECOVERY OF GRANULOCYTE COUN
     Route: 058
  11. RITUXIMAB. [Suspect]
     Active Substance: RITUXIMAB
     Indication: PRODUCT USED FOR UNKNOWN INDICATION
     Dosage: REGIMEN-A, CYCLICALLY ON DAY 2 AND DAY 8 (CYCLES 1 AND 3 ONLY)
     Route: 042
  12. INOTUZUMAB OZOGAMICIN [Suspect]
     Active Substance: INOTUZUMAB OZOGAMICIN
     Dosage: REGIMEN B, ON DAY 2 OR 3, CYCLES 2 AND 4 ONLY
     Route: 042
  13. MESNA FOR INJECTION 1 GRAM [Suspect]
     Active Substance: MESNA
     Indication: PRODUCT USED FOR UNKNOWN INDICATION
     Dosage: REGIMEN A, OVER 24 HOURS FOR 3 DAYS ON DAYS 1-3)
     Route: 042

REACTIONS (1)
  - Upper gastrointestinal haemorrhage [Recovered/Resolved]

NARRATIVE: CASE EVENT DATE: 20180331
